FAERS Safety Report 9668019 (Version 2)
Quarter: 2013Q4

REPORT INFORMATION
  Report Type: Spontaneous
  Country: JP (occurrence: JP)
  Receive Date: 20131104
  Receipt Date: 20131120
  Transmission Date: 20140711
  Serious: Yes (Hospitalization)
  Sender: FDA-Public Use
  Company Number: JP-GLAXOSMITHKLINE-B0938552A

PATIENT
  Age: 76 Year
  Sex: Female

DRUGS (5)
  1. IMIGRAN STATDOSE [Suspect]
     Indication: CLUSTER HEADACHE
     Dosage: 3MG PER DAY
     Route: 058
     Dates: start: 20130918
  2. TEGRETOL [Concomitant]
     Dosage: 200MG TWICE PER DAY
     Route: 048
  3. LYRICA [Concomitant]
     Dosage: 75MG TWICE PER DAY
     Route: 048
  4. VOLTAREN [Concomitant]
     Dosage: 15MG PER DAY
     Route: 062
  5. DEPAS [Concomitant]
     Dosage: .5MG PER DAY
     Route: 048

REACTIONS (7)
  - Altered state of consciousness [Recovered/Resolved]
  - Hypertension [Recovered/Resolved]
  - Feeling abnormal [Unknown]
  - Head discomfort [Unknown]
  - Hot flush [Unknown]
  - Nausea [Unknown]
  - Vomiting [Unknown]
